FAERS Safety Report 5715275-6 (Version None)
Quarter: 2008Q2

REPORT INFORMATION
  Report Type: 
  Country: None (occurrence: None)
  Receive Date: 20080423
  Receipt Date: 20080411
  Transmission Date: 20081010
  Serious: Yes (Other)
  Sender: FDA-Public Use
  Company Number: US-PFIZER INC-2008014711

PATIENT
  Sex: Female
  Weight: 68 kg

DRUGS (7)
  1. CHANTIX [Suspect]
     Indication: SMOKING CESSATION THERAPY
     Route: 048
  2. OMEPRAZOLE [Suspect]
  3. VALSARTAN [Suspect]
  4. LISINOPRIL [Concomitant]
  5. CLARITHROMYCIN [Concomitant]
  6. ACETYLSALICYLIC ACID SRT [Concomitant]
  7. PREVACID [Concomitant]

REACTIONS (7)
  - DYSPHAGIA [None]
  - DYSURIA [None]
  - PHARYNGEAL OEDEMA [None]
  - POLLAKIURIA [None]
  - SUPRAPUBIC PAIN [None]
  - TACHYCARDIA [None]
  - VENTRICULAR EXTRASYSTOLES [None]
